FAERS Safety Report 6627785-8 (Version None)
Quarter: 2010Q1

REPORT INFORMATION
  Report Type: 
  Country: None (occurrence: None)
  Receive Date: 20100311
  Receipt Date: 20100302
  Transmission Date: 20100710
  Serious: Yes (Other)
  Sender: FDA-Public Use
  Company Number: US-ASTRAZENECA-2010SE04976

PATIENT
  Age: 79 Year
  Sex: Female
  Weight: 77.1 kg

DRUGS (10)
  1. SYMBICORT [Suspect]
     Indication: BRONCHITIS
     Dosage: 160/4.5 ONE PUFF BID
     Route: 055
     Dates: start: 20080716
  2. SYMBICORT [Suspect]
     Indication: CHRONIC OBSTRUCTIVE PULMONARY DISEASE
     Dosage: 160/4.5 ONE PUFF BID
     Route: 055
     Dates: start: 20080716
  3. SYMBICORT [Suspect]
     Dosage: 160/4.5 TWO PUFF BID
     Route: 055
     Dates: start: 20090324, end: 20091209
  4. SYMBICORT [Suspect]
     Dosage: 160/4.5 TWO PUFF BID
     Route: 055
     Dates: start: 20090324, end: 20091209
  5. SYMBICORT [Suspect]
     Dosage: 80/4.5, 320 MCG BID
     Route: 055
     Dates: start: 20100202
  6. SYMBICORT [Suspect]
     Dosage: 80/4.5, 320 MCG BID
     Route: 055
     Dates: start: 20100202
  7. COMBIVENT [Concomitant]
  8. SINGULAIR [Concomitant]
  9. ASPIRIN [Concomitant]
  10. AMLODIPINE BESYLATE [Concomitant]

REACTIONS (2)
  - SKIN DISCOLOURATION [None]
  - WOUND [None]
